FAERS Safety Report 6366563-4 (Version None)
Quarter: 2009Q3

REPORT INFORMATION
  Report Type: 
  Country: None (occurrence: None)
  Receive Date: 20090921
  Receipt Date: 20090917
  Transmission Date: 20100115
  Serious: Yes (Hospitalization)
  Sender: FDA-Public Use
  Company Number: US-BRISTOL-MYERS SQUIBB COMPANY-14783724

PATIENT
  Age: 42 Year
  Sex: Male
  Weight: 69 kg

DRUGS (7)
  1. QUESTRAN [Suspect]
     Indication: CROHN'S DISEASE
  2. REMICADE [Suspect]
     Indication: CROHN'S DISEASE
     Dosage: REMICADE LYOPHILIZED POWDER RECEIVED 8INF ALSO RECEIVED ON 22AUG03
     Route: 042
     Dates: start: 20020829
  3. IMODIUM [Suspect]
     Indication: CROHN'S DISEASE
  4. NEXIUM [Suspect]
     Indication: CROHN'S DISEASE
  5. PEDIALYTE [Suspect]
     Indication: CROHN'S DISEASE
  6. XIFAXAN [Suspect]
     Indication: CROHN'S DISEASE
  7. CERTOLIZUMAB PEGOL [Suspect]
     Indication: CROHN'S DISEASE

REACTIONS (2)
  - DEHYDRATION [None]
  - RENAL FAILURE ACUTE [None]
